FAERS Safety Report 5836077-6 (Version None)
Quarter: 2008Q3

REPORT INFORMATION
  Report Type: 
  Country: None (occurrence: None)
  Receive Date: 20080806
  Receipt Date: 20080731
  Transmission Date: 20090109
  Serious: Yes (Hospitalization)
  Sender: FDA-Public Use
  Company Number: MY-MERCK-0507MYS00005

PATIENT
  Sex: Female

DRUGS (3)
  1. FOSAMAX [Suspect]
     Route: 048
  2. FOSAMAX [Suspect]
     Route: 048
  3. CALCIUM (UNSPECIFIED) AND VITAMIN D (UNSPECIFIED) [Concomitant]
     Route: 065

REACTIONS (2)
  - FEMUR FRACTURE [None]
  - PATHOLOGICAL FRACTURE [None]
